FAERS Safety Report 5495678-8 (Version None)
Quarter: 2007Q4

REPORT INFORMATION
  Report Type: 
  Country: None (occurrence: None)
  Receive Date: 20071018
  Receipt Date: 20070330
  Transmission Date: 20080405
  Serious: Yes (Other)
  Sender: FDA-Public Use
  Company Number: 2006091330

PATIENT
  Age: 42 Year
  Sex: Female

DRUGS (6)
  1. NEURONTIN [Suspect]
     Indication: PAIN
     Dosage: 2400 MG (800 MG, 3 IN 1 D)
  2. DURAGESIC-100 [Concomitant]
  3. MORPHINE [Concomitant]
  4. EFFEXOR XR [Concomitant]
  5. LUVOX [Concomitant]
  6. REMERON [Concomitant]

REACTIONS (2)
  - DRUG INEFFECTIVE [None]
  - SUICIDE ATTEMPT [None]
